FAERS Safety Report 7982734-5 (Version None)
Quarter: 2011Q4

REPORT INFORMATION
  Report Type: 
  Country: None (occurrence: None)
  Receive Date: 20111215
  Receipt Date: 20111212
  Transmission Date: 20120403
  Serious: Yes (Other)
  Sender: FDA-Public Use
  Company Number: US-ROCHE-802597

PATIENT
  Sex: Female
  Weight: 99.88 kg

DRUGS (5)
  1. SOTRET [Suspect]
     Indication: ACNE
     Route: 065
     Dates: start: 19980201, end: 20020401
  2. AMNESTEEM [Suspect]
     Indication: ACNE
     Route: 065
     Dates: start: 19980201, end: 20020401
  3. ACCUTANE [Suspect]
     Route: 065
     Dates: start: 19980201, end: 20020401
  4. CLARAVIS [Suspect]
     Indication: ACNE
     Route: 065
     Dates: start: 19980201, end: 20020401
  5. ACCUTANE [Suspect]
     Indication: ACNE
     Route: 065
     Dates: start: 19840101, end: 19880101

REACTIONS (4)
  - ANXIETY [None]
  - INFLAMMATORY BOWEL DISEASE [None]
  - EMOTIONAL DISTRESS [None]
  - CROHN'S DISEASE [None]
